FAERS Safety Report 17098582 (Version 1)
Quarter: 2019Q4

REPORT INFORMATION
  Report Type: Spontaneous
  Country: US (occurrence: US)
  Receive Date: 20191202
  Receipt Date: 20191202
  Transmission Date: 20200122
  Serious: Yes (Disabling)
  Sender: FDA-Public Use
  Company Number: US-PFIZER INC-2019208045

PATIENT
  Age: 61 Year
  Sex: Female
  Weight: 61.22 kg

DRUGS (1)
  1. LYRICA [Suspect]
     Active Substance: PREGABALIN
     Indication: SYRINGOMYELIA
     Dosage: 75 MG, 2X/DAY
     Route: 048

REACTIONS (5)
  - Bone disorder [Unknown]
  - Musculoskeletal stiffness [Unknown]
  - Off label use [Unknown]
  - Product use in unapproved indication [Unknown]
  - Muscle atrophy [Unknown]
